FAERS Safety Report 18412548 (Version 2)
Quarter: 2020Q4

REPORT INFORMATION
  Report Type: Spontaneous
  Country: IT (occurrence: IT)
  Receive Date: 20201022
  Receipt Date: 20201204
  Transmission Date: 20210114
  Serious: Yes (Hospitalization, Other)
  Sender: FDA-Public Use
  Company Number: IT-AUROBINDO-AUR-APL-2020-052872

PATIENT
  Age: 74 Year
  Sex: Male

DRUGS (8)
  1. PACLITAXEL. [Suspect]
     Active Substance: PACLITAXEL
     Indication: LUNG ADENOCARCINOMA
     Dosage: 83.7 MILLIGRAM, CYCLICAL
     Route: 042
     Dates: start: 20190416, end: 20190521
  2. DEXAMETHASONE. [Concomitant]
     Active Substance: DEXAMETHASONE
     Indication: LUNG ADENOCARCINOMA
     Dosage: 16 MILLIGRAM, CYCLICAL
     Route: 065
     Dates: start: 20190416
  3. GRANISETRON [Concomitant]
     Active Substance: GRANISETRON
     Indication: LUNG ADENOCARCINOMA
     Dosage: 3 MILLIGRAM, CYCLICAL
     Route: 042
     Dates: start: 20190416
  4. DURVALUMAB. [Suspect]
     Active Substance: DURVALUMAB
     Indication: LUNG ADENOCARCINOMA
     Dosage: 699.2 MILLIGRAM, CYCLICAL
     Route: 042
     Dates: start: 20190822
  5. PEMETREXED DISODIUM [Suspect]
     Active Substance: PEMETREXED DISODIUM
     Indication: LUNG ADENOCARCINOMA
     Dosage: 800 MILLIGRAM, CYCLICAL
     Route: 042
     Dates: start: 20200810
  6. CHLORPHENAMINE [Concomitant]
     Active Substance: CHLORPHENIRAMINE MALEATE
     Indication: LUNG ADENOCARCINOMA
     Dosage: 10 MILLIGRAM, CYCLICAL
     Route: 042
     Dates: start: 20190416
  7. RANITIDINE. [Concomitant]
     Active Substance: RANITIDINE
     Indication: LUNG ADENOCARCINOMA
     Dosage: 50 MILLIGRAM, CYCLICAL
     Route: 042
     Dates: start: 20190416
  8. CARBOPLATIN. [Suspect]
     Active Substance: CARBOPLATIN
     Indication: LUNG ADENOCARCINOMA
     Dosage: 165.1 MILLIGRAM, CYCLICAL
     Route: 042
     Dates: start: 20190416

REACTIONS (2)
  - Dyspnoea [Recovering/Resolving]
  - Pulmonary embolism [Recovering/Resolving]

NARRATIVE: CASE EVENT DATE: 20200907
